FAERS Safety Report 19193915 (Version 2)
Quarter: 2022Q1

REPORT INFORMATION
  Report Type: Spontaneous
  Country: CA (occurrence: CA)
  Receive Date: 20210429
  Receipt Date: 20220322
  Transmission Date: 20220423
  Serious: Yes (Death)
  Sender: FDA-Public Use
  Company Number: CA-PFIZER INC-2021417922

PATIENT
  Age: 52 Year
  Sex: Male
  Weight: 90 kg

DRUGS (14)
  1. VORICONAZOLE [Suspect]
     Active Substance: VORICONAZOLE
     Indication: Aspergillus infection
     Dosage: 6 MG/KG TWICE DAILY FOR TWO DOSES
     Route: 042
  2. VORICONAZOLE [Suspect]
     Active Substance: VORICONAZOLE
     Dosage: 4 MG/KG TWICE DAILY
     Route: 042
  3. VORICONAZOLE [Suspect]
     Active Substance: VORICONAZOLE
     Dosage: TWO ADDITIONAL DOSES OF VORICONAZOLE 6 MG/KG
  4. VORICONAZOLE [Suspect]
     Active Substance: VORICONAZOLE
     Dosage: 4 MG/KG TWICE DAILY
  5. VORICONAZOLE [Suspect]
     Active Substance: VORICONAZOLE
     Dosage: INCREASED TO 4.5 MG/KG TWICE DAILY ON DAY 23
  6. VORICONAZOLE [Suspect]
     Active Substance: VORICONAZOLE
     Dosage: INCREASED TO 6.5 MG/KG THREE TIMES DAILY.
  7. CASPOFUNGIN [Concomitant]
     Active Substance: CASPOFUNGIN
     Indication: Aspergillus infection
     Dosage: 70 MG (DAY 1)
  8. CASPOFUNGIN [Concomitant]
     Active Substance: CASPOFUNGIN
     Dosage: 50 MG, DAILY
  9. CASPOFUNGIN [Concomitant]
     Active Substance: CASPOFUNGIN
     Dosage: INCREASED TO 70 MG/DAY
  10. AMPHOTERICIN B [Concomitant]
     Active Substance: AMPHOTERICIN B
     Indication: Fungal infection
     Dosage: 3 MG/KG, DAILY
  11. AMPHOTERICIN B [Concomitant]
     Active Substance: AMPHOTERICIN B
     Indication: Aspergillus infection
     Dosage: 25 MG, 3X/DAY
  12. AMPHOTERICIN B [Concomitant]
     Active Substance: AMPHOTERICIN B
     Dosage: 5 MG/KG, DAILY(ON DAY 30)
     Route: 042
  13. MEROPENEM [Concomitant]
     Active Substance: MEROPENEM
     Indication: Pneumonia
     Dosage: UNK
  14. METHYLPREDNISOLONE [Concomitant]
     Active Substance: METHYLPREDNISOLONE
     Indication: Pneumonitis
     Dosage: 1 MG/KG, DAILY

REACTIONS (2)
  - Drug level below therapeutic [Fatal]
  - Treatment failure [Fatal]
